FAERS Safety Report 9003359 (Version 3)
Quarter: 2013Q1

REPORT INFORMATION
  Report Type: Spontaneous
  Country: US (occurrence: US)
  Receive Date: 20130108
  Receipt Date: 20130122
  Transmission Date: 20140127
  Serious: Yes (Hospitalization, Other)
  Sender: FDA-Public Use
  Company Number: CHPA2012US026019

PATIENT
  Age: 67 Year
  Sex: Male

DRUGS (2)
  1. THERAFLU SINUS + COLD [Suspect]
     Indication: SINUS DISORDER
     Dosage: 1 PACK PER DAY
     Route: 048
  2. DRUG THERAPY NOS [Concomitant]
     Indication: INFLUENZA
     Dosage: UNK
     Route: 048
     Dates: start: 201212

REACTIONS (17)
  - Hypoaesthesia [Recovered/Resolved]
  - Dysarthria [Recovered/Resolved]
  - Fall [Recovered/Resolved]
  - Salivary hypersecretion [Recovered/Resolved]
  - Vertigo [Recovered/Resolved]
  - Bladder cancer [Recovered/Resolved]
  - Blood urine present [Recovered/Resolved]
  - Viral infection [Not Recovered/Not Resolved]
  - Sinus congestion [Recovered/Resolved]
  - Sinus headache [Not Recovered/Not Resolved]
  - Oropharyngeal pain [Not Recovered/Not Resolved]
  - Cough [Not Recovered/Not Resolved]
  - Headache [Not Recovered/Not Resolved]
  - Eye disorder [Not Recovered/Not Resolved]
  - Dry throat [Not Recovered/Not Resolved]
  - Eye pain [Not Recovered/Not Resolved]
  - Odynophagia [Not Recovered/Not Resolved]
